APPROVED DRUG PRODUCT: SIMVASTATIN
Active Ingredient: SIMVASTATIN
Strength: 80MG
Dosage Form/Route: TABLET;ORAL
Application: A211394 | Product #004 | TE Code: AB
Applicant: YILING PHARMACEUTICAL LTD
Approved: Nov 27, 2024 | RLD: No | RS: No | Type: RX